FAERS Safety Report 8000426-3 (Version None)
Quarter: 2011Q4

REPORT INFORMATION
  Report Type: 
  Country: None (occurrence: None)
  Receive Date: 20111222
  Receipt Date: 20110314
  Transmission Date: 20120403
  Serious: No
  Sender: FDA-Public Use
  Company Number: US-BRISTOL-MYERS SQUIBB COMPANY-15605769

PATIENT
  Sex: Male

DRUGS (7)
  1. NEXIUM [Concomitant]
  2. MULTAQ [Concomitant]
  3. METOPROLOL TARTRATE [Concomitant]
  4. PRAVACHOL [Suspect]
     Indication: BLOOD CHOLESTEROL INCREASED
     Dosage: DOSE REDUCED TO 40MG ON 10JAN11
     Dates: start: 20101201, end: 20110313
  5. PLAVIX [Concomitant]
  6. IBUPROFEN [Concomitant]
  7. ASPIRIN [Concomitant]

REACTIONS (1)
  - MYALGIA [None]
